FAERS Safety Report 5672189-8 (Version None)
Quarter: 2008Q1

REPORT INFORMATION
  Report Type: 
  Country: None (occurrence: None)
  Receive Date: 20080319
  Receipt Date: 20080308
  Transmission Date: 20080703
  Serious: Yes (Other)
  Sender: FDA-Public Use
  Company Number: US-ROCHE-551926

PATIENT
  Age: 19 Year
  Sex: Female

DRUGS (1)
  1. ACCUTANE [Suspect]
     Indication: ACNE
     Dosage: THE PATIENT WAS DISPENSED ACCUTANE ON AN UNKNOWN DATE.
     Route: 065

REACTIONS (3)
  - HEPATIC ENZYME INCREASED [None]
  - HODGKIN'S DISEASE [None]
  - LYMPHADENOPATHY [None]
